FAERS Safety Report 5476279-4 (Version None)
Quarter: 2007Q4

REPORT INFORMATION
  Report Type: 
  Country: None (occurrence: None)
  Receive Date: 20071003
  Receipt Date: 20070921
  Transmission Date: 20080405
  Serious: Yes (Hospitalization, Disabling)
  Sender: FDA-Public Use
  Company Number: JP-PFIZER INC-2007070555

PATIENT
  Sex: Female
  Weight: 40 kg

DRUGS (11)
  1. CELECOX [Suspect]
     Indication: BACK PAIN
     Route: 048
     Dates: start: 20070627, end: 20070724
  2. LANSOPRAZOLE [Concomitant]
     Route: 048
  3. ATELEC [Concomitant]
     Route: 048
     Dates: start: 20050719
  4. ALSIODOL [Concomitant]
     Route: 048
     Dates: start: 20050719
  5. FERRIC SODIUM CITRATE [Concomitant]
     Route: 048
     Dates: start: 20060222
  6. EPEL [Concomitant]
     Route: 048
     Dates: start: 20050719
  7. MECOBALAMIN [Concomitant]
     Route: 048
     Dates: start: 20051228
  8. MICARDIS [Concomitant]
     Route: 048
     Dates: start: 20061115
  9. BROTIZOLAM [Concomitant]
     Route: 048
     Dates: start: 20061005
  10. LIPITOR [Concomitant]
     Route: 048
     Dates: start: 20050719
  11. MOBIC [Concomitant]
     Route: 048
     Dates: start: 20050802, end: 20070627

REACTIONS (1)
  - DIARRHOEA [None]
